FAERS Safety Report 7064536-X (Version None)
Quarter: 2010Q4

REPORT INFORMATION
  Report Type: 
  Country: None (occurrence: None)
  Receive Date: 20101027
  Receipt Date: 20101014
  Transmission Date: 20110411
  Serious: Yes (Hospitalization)
  Sender: FDA-Public Use
  Company Number: US-ALEXION-A201001305

PATIENT
  Sex: Male

DRUGS (2)
  1. SOLIRIS [Suspect]
     Indication: PAROXYSMAL NOCTURNAL HAEMOGLOBINURIA
     Dosage: 600 MG, QWX4
     Route: 042
     Dates: start: 20091029, end: 20090101
  2. SOLIRIS [Suspect]
     Dosage: 900 MG, Q2W
     Route: 042
     Dates: start: 20091209

REACTIONS (6)
  - ANAEMIA [None]
  - DRUG DOSE OMISSION [None]
  - NAUSEA [None]
  - PHARYNGITIS [None]
  - STAPHYLOCOCCAL INFECTION [None]
  - VOMITING [None]
